FAERS Safety Report 5817736-8 (Version None)
Quarter: 2008Q3

REPORT INFORMATION
  Report Type: 
  Country: None (occurrence: None)
  Receive Date: 20080722
  Receipt Date: 20080715
  Transmission Date: 20090109
  Serious: Yes (Hospitalization)
  Sender: FDA-Public Use
  Company Number: PHEH2008US06009

PATIENT

DRUGS (1)
  1. DIOVAN HCT [Suspect]
     Indication: HYPERTENSION

REACTIONS (2)
  - BRADYCARDIA [None]
  - TACHYCARDIA [None]
